FAERS Safety Report 9936334 (Version 3)
Quarter: 2014Q4

REPORT INFORMATION
  Report Type: Spontaneous
  Country: US (occurrence: US)
  Receive Date: 20140228
  Receipt Date: 20141017
  Transmission Date: 20150529
  Serious: No
  Sender: FDA-Public Use
  Company Number: US-AMGEN-USASP2014002597

PATIENT
  Age: 56 Year
  Sex: Female
  Weight: 84.81 kg

DRUGS (6)
  1. CALCIUM +D                         /00944201/ [Concomitant]
     Active Substance: CALCIUM\VITAMIN D
     Dosage: UNK
  2. TRAMADOL [Concomitant]
     Active Substance: TRAMADOL
     Dosage: UNK
     Route: 048
  3. ENBREL [Suspect]
     Active Substance: ETANERCEPT
     Indication: RHEUMATOID ARTHRITIS
     Dosage: 50 MG, QWK
     Route: 058
     Dates: end: 201409
  4. PLAQUENIL [Concomitant]
     Active Substance: HYDROXYCHLOROQUINE SULFATE
     Dosage: UNK
  5. ESTRADIOL. [Concomitant]
     Active Substance: ESTRADIOL
     Dosage: UNK
  6. AMBIEN [Concomitant]
     Active Substance: ZOLPIDEM TARTRATE
     Dosage: UNK
     Route: 048

REACTIONS (13)
  - Oropharyngeal pain [Unknown]
  - Pain [Recovered/Resolved]
  - Mobility decreased [Not Recovered/Not Resolved]
  - Rhinorrhoea [Not Recovered/Not Resolved]
  - Influenza like illness [Recovered/Resolved]
  - Headache [Not Recovered/Not Resolved]
  - Throat irritation [Not Recovered/Not Resolved]
  - Respiratory tract congestion [Not Recovered/Not Resolved]
  - Pyrexia [Not Recovered/Not Resolved]
  - Bronchitis [Recovered/Resolved]
  - Productive cough [Not Recovered/Not Resolved]
  - Ear pain [Not Recovered/Not Resolved]
  - Nasopharyngitis [Unknown]

NARRATIVE: CASE EVENT DATE: 20140108
